FAERS Safety Report 10279899 (Version 2)
Quarter: 2014Q3

REPORT INFORMATION
  Report Type: Spontaneous
  Country: GB (occurrence: GB)
  Receive Date: 20140707
  Receipt Date: 20140707
  Transmission Date: 20150326
  Serious: Yes (Hospitalization, Other)
  Sender: FDA-Public Use
  Company Number: GB-JNJFOC-20140513881

PATIENT
  Age: 24 Year
  Sex: Female
  Weight: 56.7 kg

DRUGS (2)
  1. REMICADE [Suspect]
     Active Substance: INFLIXIMAB
     Indication: COLITIS ULCERATIVE
     Dosage: DOSE: 300 MG
     Route: 042
     Dates: start: 20140519
  2. REMICADE [Suspect]
     Active Substance: INFLIXIMAB
     Indication: CROHN^S DISEASE
     Dosage: DOSE: 300 MG
     Route: 042
     Dates: start: 20140519

REACTIONS (4)
  - Colectomy [Unknown]
  - Ileostomy [Unknown]
  - Wrong technique in drug usage process [Recovered/Resolved]
  - Colectomy total [Unknown]

NARRATIVE: CASE EVENT DATE: 20140519
